FAERS Safety Report 9924913 (Version 4)
Quarter: 2014Q2

REPORT INFORMATION
  Report Type: Spontaneous
  Country: JP (occurrence: JP)
  Receive Date: 20140226
  Receipt Date: 20140522
  Transmission Date: 20141212
  Serious: Yes (Life-Threatening, Hospitalization, Disabling)
  Sender: FDA-Public Use
  Company Number: JP-BRISTOL-MYERS SQUIBB COMPANY-18760074

PATIENT
  Age: 58 Year
  Sex: Male
  Weight: 48 kg

DRUGS (8)
  1. ERBITUX SOLN FOR INF 5MG/ML [Suspect]
     Indication: HYPOPHARYNGEAL CANCER
     Dosage: 590 MG?12MAR13-12MAR13?20MAR13-20MAR13:370 MG
     Route: 041
     Dates: start: 20130312, end: 20130320
  2. OXYCONTIN [Suspect]
     Indication: HYPOPHARYNGEAL CANCER
     Route: 048
     Dates: start: 20130221, end: 20130325
  3. RINGERS SOLUTION [Suspect]
     Indication: HYPOPHARYNGEAL CANCER
     Route: 041
     Dates: start: 20130317, end: 20130329
  4. SOLDEM 3A [Suspect]
     Indication: HYPOPHARYNGEAL CANCER
     Route: 041
     Dates: end: 20130422
  5. CISPLATIN [Concomitant]
     Indication: HYPOPHARYNGEAL CANCER
     Dosage: INTRAVENOUSLY?13MAR13-?INTRAVENOUS BOLUS
     Route: 041
     Dates: start: 20130215
  6. 5-FLUOROURACIL [Concomitant]
     Indication: HYPOPHARYNGEAL CANCER
     Dosage: INTRAVENOUSLY 850 MG?14FE13 TO 19FE2013?12MR13-16MR13?INTRAVENOUS BOLUS
     Route: 041
     Dates: start: 20130214, end: 20130316
  7. DOCETAXEL [Concomitant]
     Indication: HYPOPHARYNGEAL CANCER
     Route: 040
     Dates: start: 20130215
  8. FENTANYL [Concomitant]
     Indication: HYPOPHARYNGEAL CANCER
     Route: 062
     Dates: start: 20130326

REACTIONS (5)
  - Pulmonary oedema [Recovered/Resolved]
  - Pyrexia [Recovered/Resolved]
  - Delirium [Recovered/Resolved]
  - Loss of consciousness [None]
  - Blood pressure decreased [None]
